FAERS Safety Report 17975350 (Version 3)
Quarter: 2020Q3

REPORT INFORMATION
  Report Type: Report from Study
  Country: US (occurrence: US)
  Receive Date: 20200702
  Receipt Date: 20200916
  Transmission Date: 20201103
  Serious: Yes (Other)
  Sender: FDA-Public Use
  Company Number: US-MYLANLABS-2020M1059378

PATIENT
  Age: 48 Year
  Sex: Female
  Weight: 88 kg

DRUGS (8)
  1. NALTREXONE [Concomitant]
     Active Substance: NALTREXONE
     Dosage: UNK
  2. NEXIUM [Concomitant]
     Active Substance: ESOMEPRAZOLE MAGNESIUM
     Dosage: UNK
  3. GLUCOSAMINE CHONDROITIN            /08437701/ [Concomitant]
     Dosage: UNK
  4. LION^S MANE [Concomitant]
     Dosage: UNK
  5. MAGNESIUM [Concomitant]
     Active Substance: MAGNESIUM
     Dosage: UNK
  6. ZONEGRAN [Concomitant]
     Active Substance: ZONISAMIDE
     Dosage: UNK
  7. GLATIRAMER ACETATE INJECTION [Suspect]
     Active Substance: GLATIRAMER ACETATE
     Indication: MULTIPLE SCLEROSIS
     Dosage: 40 MILLIGRAM, 3XW
     Route: 058
     Dates: start: 20200608
  8. CANNABIDIOL [Concomitant]
     Active Substance: CANNABIDIOL
     Dosage: UNK

REACTIONS (14)
  - Dizziness [Recovered/Resolved]
  - Muscular weakness [Recovered/Resolved]
  - Balance disorder [Recovered/Resolved]
  - Lymphoedema [Not Recovered/Not Resolved]
  - Injection site bruising [Recovering/Resolving]
  - Multiple sclerosis [Unknown]
  - Injection site warmth [Not Recovered/Not Resolved]
  - Injection site pruritus [Not Recovered/Not Resolved]
  - Abdominal distension [Not Recovered/Not Resolved]
  - Gait disturbance [Recovered/Resolved]
  - Injection site erythema [Not Recovered/Not Resolved]
  - Headache [Recovered/Resolved]
  - Fatigue [Unknown]
  - Injection site mass [Recovering/Resolving]

NARRATIVE: CASE EVENT DATE: 2020
